FAERS Safety Report 18797015 (Version 1)
Quarter: 2021Q1

REPORT INFORMATION
  Report Type: Spontaneous
  Country: HR (occurrence: HR)
  Receive Date: 20210127
  Receipt Date: 20210127
  Transmission Date: 20210419
  Serious: Yes (Other)
  Sender: FDA-Public Use
  Company Number: NVSC2021HR003292

PATIENT
  Sex: Female

DRUGS (2)
  1. KETONAL (KETOPROFEN) [Suspect]
     Active Substance: KETOPROFEN
     Indication: PRODUCT USED FOR UNKNOWN INDICATION
     Dosage: UNK
     Route: 065
  2. COSENTYX [Suspect]
     Active Substance: SECUKINUMAB
     Indication: PRODUCT USED FOR UNKNOWN INDICATION
     Route: 065

REACTIONS (8)
  - Nausea [Unknown]
  - Rash [Unknown]
  - Insomnia [Unknown]
  - Hunger [Unknown]
  - Acne [Unknown]
  - Arrhythmia [Unknown]
  - Suspected COVID-19 [Recovered/Resolved]
  - Abdominal pain [Unknown]
